FAERS Safety Report 11176680 (Version 2)
Quarter: 2015Q2

REPORT INFORMATION
  Report Type: Spontaneous
  Country: US (occurrence: US)
  Receive Date: 20150610
  Receipt Date: 20150610
  Transmission Date: 20150821
  Serious: No
  Sender: FDA-Public Use
  Company Number: US-BAYER-2015-320643

PATIENT
  Age: 13 Year
  Sex: Male
  Weight: 59 kg

DRUGS (3)
  1. CLARITIN REDITABS [Suspect]
     Active Substance: LORATADINE
     Dosage: 1 DF, UNK
  2. CLARITIN REDITABS [Suspect]
     Active Substance: LORATADINE
     Dosage: 3 DF, ONCE
  3. MUCINEX [Concomitant]
     Active Substance: GUAIFENESIN

REACTIONS (2)
  - Extra dose administered [Unknown]
  - Medication error [Unknown]

NARRATIVE: CASE EVENT DATE: 20150607
